FAERS Safety Report 19381713 (Version 1)
Quarter: 2021Q2

REPORT INFORMATION
  Report Type: Other
  Country: GB (occurrence: GB)
  Receive Date: 20210607
  Receipt Date: 20210607
  Transmission Date: 20210717
  Serious: Yes (Other)
  Sender: FDA-Public Use
  Company Number: GB-ROCHE-2841002

PATIENT

DRUGS (1)
  1. PEGINTERFERON ALFA?2A. [Suspect]
     Active Substance: PEGINTERFERON ALFA-2A
     Indication: MYELOPROLIFERATIVE NEOPLASM
     Route: 065

REACTIONS (7)
  - Rash [Unknown]
  - Anaemia [Unknown]
  - Hepatotoxicity [Unknown]
  - Myalgia [Unknown]
  - Fatigue [Unknown]
  - Neutropenia [Unknown]
  - Arthralgia [Unknown]
